FAERS Safety Report 11490189 (Version 1)
Quarter: 2015Q3

REPORT INFORMATION
  Report Type: Spontaneous
  Country: US (occurrence: US)
  Receive Date: 20150910
  Receipt Date: 20150910
  Transmission Date: 20151125
  Serious: No
  Sender: FDA-Public Use
  Company Number: US-TEVA-572363USA

PATIENT
  Age: 67 Year
  Sex: Male

DRUGS (1)
  1. CAPECITABINE. [Suspect]
     Active Substance: CAPECITABINE
     Indication: GASTROINTESTINAL CARCINOMA
     Dosage: 3 TABLETS WITH BREAKFAST AND 3 TABLETS WITH SUPPER ONLY ON DAYS OF RADIATION
     Dates: start: 20150602

REACTIONS (1)
  - Diarrhoea [Recovering/Resolving]
